FAERS Safety Report 9227411 (Version 1)
Quarter: 2013Q1

REPORT INFORMATION
  Report Type: Spontaneous
  Country: US (occurrence: None)
  Receive Date: 20121004
  Receipt Date: 20121004
  Transmission Date: 20140127
  Serious: Yes (Hospitalization)
  Sender: FDA-Public Use
  Company Number: PHEH2011US009427

PATIENT
  Age: 61 Year
  Sex: Female

DRUGS (12)
  1. ESTALIS COMBIPATCH (ESTRADIOL, NORETHISTERONE ACETATE) TRANS-THERAPEUTIC-SYSTEM [Suspect]
     Dosage: 0.05/0.25, TWICE PER WEEK, TRANSDERMAL
     Route: 062
  2. DILAUDID (HYDROMORPHONE HYDROCHLORIDE) [Suspect]
  3. ANAESTHETICS (NO INGREDIENTS/SUBSTANCES) [Suspect]
  4. LORAZEPAM (LORAZEPAM) [Concomitant]
  5. LITHIUM (LITHIUM) UNKNOWN [Concomitant]
  6. LEXAPRO (ESCITALOPRAM OXALATE) [Concomitant]
  7. NEXIUM (ESOMEPRAZOLE MAGNESIUM0 [Concomitant]
  8. SUMITRIPAN (SUMITRIPAN) [Concomitant]
  9. SPIRIVA (TIOTROPIUM BROMIDE) [Concomitant]
  10. TYLENOL (PARACETAMOL) [Concomitant]
  11. VITAMINS (ASCORBIC ACID, ERGOCALCIFEROL, NICOTINAMIDE, RETINOL, RIBOFLAVIN, THIAMINE HYDROCHLORIDE) [Concomitant]
  12. EXCEDRIN (CAFFEINE, PARACETAMOL) [Concomitant]

REACTIONS (5)
  - Back pain [None]
  - Night sweats [None]
  - Hyperhidrosis [None]
  - Somnolence [None]
  - Drug ineffective [None]
